FAERS Safety Report 9197822 (Version 2)
Quarter: 2013Q2

REPORT INFORMATION
  Report Type: Spontaneous
  Country: JP (occurrence: JP)
  Receive Date: 20130328
  Receipt Date: 20130411
  Transmission Date: 20140414
  Serious: Yes (Other)
  Sender: FDA-Public Use
  Company Number: JP-ACTELION-A-CH2013-81162

PATIENT
  Age: 70 Year
  Sex: 0

DRUGS (5)
  1. TRACLEER [Suspect]
     Indication: PULMONARY ARTERIAL HYPERTENSION
     Dosage: UNK
     Route: 048
     Dates: start: 20130304
  2. AMLODIPINE BESILATE [Concomitant]
  3. CLOPIDOGREL SULFATE [Concomitant]
  4. LANSOPRAZOLE [Concomitant]
  5. PIRFENIDONE [Concomitant]

REACTIONS (3)
  - Pulmonary oedema [Not Recovered/Not Resolved]
  - Idiopathic pulmonary fibrosis [Unknown]
  - Condition aggravated [Unknown]
